FAERS Safety Report 24291523 (Version 1)
Quarter: 2024Q3

REPORT INFORMATION
  Report Type: Spontaneous
  Country: US (occurrence: None)
  Receive Date: 20240906
  Receipt Date: 20240906
  Transmission Date: 20241016
  Serious: No
  Sender: DOMPE FARMACEUTICI
  Company Number: US-FARMAPROD-202308-202309-2745

PATIENT
  Age: 80 Year
  Sex: Female

DRUGS (5)
  1. OXERVATE [Suspect]
     Active Substance: CENEGERMIN-BKBJ
     Indication: Neurotrophic keratopathy
     Route: 047
     Dates: start: 20230828
  2. LUMIFY [Concomitant]
     Active Substance: BRIMONIDINE TARTRATE
  3. THERATEARS [Concomitant]
     Active Substance: CARBOXYMETHYLCELLULOSE SODIUM
  4. PATADAY [Concomitant]
     Active Substance: OLOPATADINE HYDROCHLORIDE
  5. CEPHALEXIN [Concomitant]
     Active Substance: CEPHALEXIN

REACTIONS (3)
  - Eye pain [Unknown]
  - Ocular hyperaemia [Recovering/Resolving]
  - Eye swelling [Recovered/Resolved]

NARRATIVE: CASE EVENT DATE: 20230910
